FAERS Safety Report 9893818 (Version 1)
Quarter: 2014Q1

REPORT INFORMATION
  Report Type: Spontaneous
  Country: SE (occurrence: SE)
  Receive Date: 20140213
  Receipt Date: 20140213
  Transmission Date: 20141002
  Serious: Yes (Hospitalization, Other)
  Sender: FDA-Public Use
  Company Number: SE-ALLERGAN-1402304US

PATIENT
  Age: 78 Year
  Sex: Male

DRUGS (4)
  1. GANFORT [Suspect]
     Indication: PRODUCT USED FOR UNKNOWN INDICATION
     Dosage: UNK, ONCE A DAY
     Dates: end: 2011
  2. AZOPT [Suspect]
     Indication: INTRAOCULAR PRESSURE INCREASED
     Dosage: UNK, TWICE DAILY
     Dates: start: 200809, end: 201109
  3. AZOPT [Suspect]
     Dosage: UNK, THREE TIMES DAILY
     Dates: start: 201109, end: 20120410
  4. LUMIGAN [Concomitant]
     Dates: start: 2011

REACTIONS (7)
  - Maculopathy [Not Recovered/Not Resolved]
  - Atrial fibrillation [Unknown]
  - Vitreous detachment [Not Recovered/Not Resolved]
  - Amaurosis fugax [Recovered/Resolved with Sequelae]
  - Intraocular pressure increased [Recovered/Resolved]
  - Cataract [Not Recovered/Not Resolved]
  - Visual acuity reduced [Not Recovered/Not Resolved]
